FAERS Safety Report 14190750 (Version 1)
Quarter: 2017Q4

REPORT INFORMATION
  Report Type: Spontaneous
  Country: US (occurrence: US)
  Receive Date: 20171114
  Receipt Date: 20171114
  Transmission Date: 20180321
  Serious: Yes (Disabling)
  Sender: FDA-Public Use
  Company Number: None

PATIENT
  Age: 28 Year
  Sex: Female
  Weight: 60.75 kg

DRUGS (2)
  1. TRIAMCINOLONE [Suspect]
     Active Substance: TRIAMCINOLONE
     Indication: ECZEMA
     Route: 061
  2. CYCLOSPORINE. [Concomitant]
     Active Substance: CYCLOSPORINE

REACTIONS (13)
  - Drug dependence [None]
  - Neuralgia [None]
  - Insomnia [None]
  - Night sweats [None]
  - Hot flush [None]
  - Secretion discharge [None]
  - Hyperaesthesia [None]
  - Pain of skin [None]
  - Fatigue [None]
  - Skin exfoliation [None]
  - Erythema [None]
  - Swelling [None]
  - Pruritus [None]
